FAERS Safety Report 17651786 (Version 1)
Quarter: 2020Q2

REPORT INFORMATION
  Report Type: Spontaneous
  Country: US (occurrence: US)
  Receive Date: 20200409
  Receipt Date: 20200409
  Transmission Date: 20200713
  Serious: No
  Sender: FDA-Public Use
  Company Number: US-STALLERGENES SAS-2082574

PATIENT
  Age: 70 Year
  Sex: Female

DRUGS (1)
  1. ORALAIR [Suspect]
     Active Substance: ANTHOXANTHUM ODORATUM POLLEN\DACTYLIS GLOMERATA POLLEN\LOLIUM PERENNE POLLEN\PHLEUM PRATENSE POLLEN\POA PRATENSIS POLLEN
     Route: 060
     Dates: start: 20200206

REACTIONS (8)
  - Ear pruritus [Unknown]
  - Throat irritation [Unknown]
  - Off label use [Unknown]
  - Product use issue [Unknown]
  - Ear discomfort [Unknown]
  - Paraesthesia oral [Unknown]
  - Hypoaesthesia oral [Unknown]
  - Salivary hypersecretion [Unknown]

NARRATIVE: CASE EVENT DATE: 202002
